FAERS Safety Report 12412021 (Version 1)
Quarter: 2016Q2

REPORT INFORMATION
  Report Type: Spontaneous
  Country: AR (occurrence: AR)
  Receive Date: 20160527
  Receipt Date: 20160527
  Transmission Date: 20160815
  Serious: Yes (Death)
  Sender: FDA-Public Use
  Company Number: AR-PFIZER INC-2016274239

PATIENT
  Age: 81 Year
  Sex: Male

DRUGS (1)
  1. INLYTA [Suspect]
     Active Substance: AXITINIB
     Indication: RENAL CELL CARCINOMA
     Dosage: UNK
     Dates: start: 20150717

REACTIONS (6)
  - Death [Fatal]
  - Malaise [Unknown]
  - Asthenia [Unknown]
  - Speech disorder [Unknown]
  - Vomiting [Unknown]
  - Incontinence [Unknown]

NARRATIVE: CASE EVENT DATE: 20160520
